FAERS Safety Report 23033713 (Version 2)
Quarter: 2023Q4

REPORT INFORMATION
  Report Type: Spontaneous
  Country: US (occurrence: US)
  Receive Date: 20231005
  Receipt Date: 20231016
  Transmission Date: 20240110
  Serious: Yes (Death, Hospitalization)
  Sender: FDA-Public Use
  Company Number: US-TEVA-2023-US-2930626

PATIENT
  Age: 28 Year
  Sex: Male

DRUGS (5)
  1. ABACAVIR\LAMIVUDINE [Suspect]
     Active Substance: ABACAVIR\LAMIVUDINE
     Indication: Acquired immunodeficiency syndrome
     Dosage: RECEIVED AT STANDARD DOSE UNDER ART THERAPY
     Route: 065
  2. TECOVIRIMAT [Suspect]
     Active Substance: TECOVIRIMAT
     Indication: Monkeypox
     Route: 065
  3. VACCINIA IMMUNE GLOBULIN HUMAN [Suspect]
     Active Substance: VACCINIA IMMUNE GLOBULIN HUMAN
     Indication: Monkeypox
     Route: 065
  4. COBICISTAT\DARUNAVIR ETHANOLATE [Suspect]
     Active Substance: COBICISTAT\DARUNAVIR ETHANOLATE
     Indication: Acquired immunodeficiency syndrome
     Dosage: RECEIVED TWICE A DAY UNDER ART THERAPY
     Route: 065
  5. BRINCIDOFOVIR [Suspect]
     Active Substance: BRINCIDOFOVIR
     Indication: Acquired immunodeficiency syndrome
     Dosage: RECEIVED AT STANDARD DOSE UNDER ART THERAPY
     Route: 065

REACTIONS (6)
  - Immune reconstitution inflammatory syndrome [Fatal]
  - Encephalopathy [Fatal]
  - Acidosis [Fatal]
  - Acute kidney injury [Fatal]
  - Tenosynovitis [Unknown]
  - Drug ineffective [Unknown]
